FAERS Safety Report 18803910 (Version 2)
Quarter: 2021Q1

REPORT INFORMATION
  Report Type: Spontaneous
  Country: GB (occurrence: GB)
  Receive Date: 20210128
  Receipt Date: 20210305
  Transmission Date: 20210419
  Serious: Yes (Death, Life-Threatening, Hospitalization, Other)
  Sender: FDA-Public Use
  Company Number: GB-MYLANLABS-2021M1005452

PATIENT
  Age: 75 Year
  Sex: Female

DRUGS (19)
  1. FENTANYL. [Suspect]
     Active Substance: FENTANYL
     Dosage: UNK; ;
     Route: 065
     Dates: start: 200203, end: 200203
  2. GLYCERYL TRINITRATE [Suspect]
     Active Substance: NITROGLYCERIN
     Indication: ANGINA PECTORIS
     Dosage: UNK; ;
     Route: 048
     Dates: start: 200203, end: 200203
  3. LISINOPRIL. [Suspect]
     Active Substance: LISINOPRIL
     Indication: HYPERTENSION
     Dosage: UNK; ;
     Route: 048
     Dates: start: 200203
  4. BUDESONIDE. [Suspect]
     Active Substance: BUDESONIDE
     Indication: ASTHMA
     Dosage: UNK; ;
     Route: 055
  5. ARAVA [Suspect]
     Active Substance: LEFLUNOMIDE
     Indication: RHEUMATOID ARTHRITIS
     Dosage: 20 MG;
     Route: 065
     Dates: start: 200203, end: 200203
  6. ACETYLSALICYLIC ACID [Suspect]
     Active Substance: ASPIRIN
     Indication: ANGINA PECTORIS
     Dosage: UNK; ;
     Route: 065
     Dates: start: 200203
  7. BUDESONIDE. [Suspect]
     Active Substance: BUDESONIDE
     Dosage: UNK
     Route: 065
  8. FENTANYL. [Suspect]
     Active Substance: FENTANYL
     Indication: ANAESTHESIA
     Dosage: UNK; ;
     Route: 042
     Dates: start: 200203, end: 200203
  9. MIDAZOLAM. [Suspect]
     Active Substance: MIDAZOLAM
     Indication: MUSCLE SPASMS
     Dosage: UNK; ;
     Route: 065
     Dates: start: 200203, end: 200203
  10. DIPRIVAN [Concomitant]
     Active Substance: PROPOFOL
     Indication: ANAESTHESIA
     Dosage: UNK; ;
     Route: 042
  11. QUININE [Suspect]
     Active Substance: QUININE
     Indication: MUSCLE SPASMS
     Dosage: UNK; ;
     Route: 065
  12. GLYCERYL TRINITRATE [Suspect]
     Active Substance: NITROGLYCERIN
     Dosage: UNK; ;
     Route: 065
     Dates: start: 200203, end: 200203
  13. PROPOFOL. [Concomitant]
     Active Substance: PROPOFOL
     Indication: ANAESTHESIA
     Dosage: UNK; ;
     Route: 042
  14. LISINOPRIL. [Suspect]
     Active Substance: LISINOPRIL
     Dosage: UNK; ;
     Route: 065
     Dates: start: 200203
  15. DILTIAZEM. [Concomitant]
     Active Substance: DILTIAZEM
     Indication: HYPERTENSION
     Dosage: UNK; ;
  16. ATORVASTATIN [Suspect]
     Active Substance: ATORVASTATIN
     Indication: HYPERCHOLESTEROLAEMIA
     Dosage: UNK; ;
     Route: 065
     Dates: start: 1999
  17. COCODAMOL [Suspect]
     Active Substance: ACETAMINOPHEN\CODEINE PHOSPHATE
     Indication: RHEUMATOID ARTHRITIS
     Dosage: UNK; ;
     Route: 065
  18. PANCURONIUM BROMIDE. [Suspect]
     Active Substance: PANCURONIUM BROMIDE
     Indication: MUSCLE SPASMS
     Dosage: UNK; ;
     Route: 065
     Dates: start: 200203
  19. DIPRIVAN [Concomitant]
     Active Substance: PROPOFOL
     Indication: ANAESTHESIA
     Dosage: UNK
     Route: 065

REACTIONS (12)
  - Hepatic ischaemia [Fatal]
  - Renal impairment [Fatal]
  - Labile blood pressure [Fatal]
  - Hepatic failure [Fatal]
  - Haematemesis [Fatal]
  - Renal failure [Fatal]
  - Ulcer [Fatal]
  - Hypovolaemia [Fatal]
  - Haemorrhage [Fatal]
  - Coagulopathy [Fatal]
  - Hepatorenal syndrome [Fatal]
  - Hepatocellular injury [Fatal]
